FAERS Safety Report 23045861 (Version 1)
Quarter: 2023Q4

REPORT INFORMATION
  Report Type: Spontaneous
  Country: US (occurrence: US)
  Receive Date: 20231009
  Receipt Date: 20231009
  Transmission Date: 20240110
  Serious: Yes (Other)
  Sender: FDA-Public Use
  Company Number: US-ABBVIE-5435810

PATIENT
  Sex: Female

DRUGS (1)
  1. SYNTHROID [Suspect]
     Active Substance: LEVOTHYROXINE SODIUM
     Indication: Product used for unknown indication
     Route: 048
     Dates: start: 1963

REACTIONS (5)
  - Goitre [Unknown]
  - Lung disorder [Unknown]
  - Blood thyroid stimulating hormone abnormal [Unknown]
  - Stress [Unknown]
  - Goitre [Unknown]

NARRATIVE: CASE EVENT DATE: 20080101
